FAERS Safety Report 7276309-3 (Version None)
Quarter: 2011Q1

REPORT INFORMATION
  Report Type: 
  Country: None (occurrence: None)
  Receive Date: 20110204
  Receipt Date: 20110118
  Transmission Date: 20110831
  Serious: No
  Sender: FDA-Public Use
  Company Number: US-B.I. PHARMACEUTICALS,INC./RIDGEFIELD-2011-BP-01915BP

PATIENT

DRUGS (1)
  1. AGGRENOX [Suspect]

REACTIONS (1)
  - DYSPHAGIA [None]
